FAERS Safety Report 24092177 (Version 1)
Quarter: 2024Q3

REPORT INFORMATION
  Report Type: Spontaneous
  Country: CN (occurrence: CN)
  Receive Date: 20240715
  Receipt Date: 20240715
  Transmission Date: 20241017
  Serious: Yes (Hospitalization, Other)
  Sender: SLATE RUN
  Company Number: CN-SLATERUN-2024SRLIT00117

PATIENT
  Age: 22 Year
  Sex: Male

DRUGS (7)
  1. VANCOMYCIN [Suspect]
     Active Substance: VANCOMYCIN
     Indication: Pneumonia
     Route: 065
  2. MEROPENEM [Concomitant]
     Active Substance: MEROPENEM
     Indication: Pneumonia
     Route: 065
  3. CASPOFUNGIN [Concomitant]
     Active Substance: CASPOFUNGIN
     Indication: Pneumonia
     Route: 065
  4. VALACYCLOVIR [Concomitant]
     Active Substance: VALACYCLOVIR HYDROCHLORIDE
     Indication: Pneumonia
     Route: 065
  5. CYTARABINE [Concomitant]
     Active Substance: CYTARABINE
     Indication: Product used for unknown indication
     Route: 065
  6. METHOTREXATE [Concomitant]
     Active Substance: METHOTREXATE
     Indication: Product used for unknown indication
     Route: 065
  7. DECITABINE [Concomitant]
     Active Substance: DECITABINE
     Indication: Product used for unknown indication
     Route: 065

REACTIONS (1)
  - Hepatotoxicity [Recovering/Resolving]
